FAERS Safety Report 13836159 (Version 2)
Quarter: 2017Q3

REPORT INFORMATION
  Report Type: Report from Study
  Country: US (occurrence: US)
  Receive Date: 20170804
  Receipt Date: 20170905
  Transmission Date: 20171127
  Serious: Yes (Hospitalization, Other)
  Sender: FDA-Public Use
  Company Number: US-BAYER-2017-089987

PATIENT
  Age: 62 Year
  Sex: Male

DRUGS (3)
  1. NEXAVAR [Suspect]
     Active Substance: SORAFENIB
     Indication: HEPATOCELLULAR CARCINOMA
     Dosage: 600 MG, QD
     Route: 048
     Dates: start: 20170529, end: 2017
  2. NEXAVAR [Suspect]
     Active Substance: SORAFENIB
     Indication: HEPATOCELLULAR CARCINOMA
     Dosage: 400 MG, BID
     Route: 048
     Dates: start: 2017, end: 20170712
  3. NEXAVAR [Suspect]
     Active Substance: SORAFENIB
     Indication: HEPATOCELLULAR CARCINOMA
     Dosage: 200 MG, BID
     Route: 048
     Dates: start: 20170503, end: 20170513

REACTIONS (23)
  - Diarrhoea [None]
  - Epistaxis [None]
  - Pain in extremity [None]
  - Constipation [None]
  - Urinary tract infection [None]
  - Haematuria [None]
  - Blood sodium decreased [None]
  - Fatigue [None]
  - Abdominal pain [None]
  - Hypotension [None]
  - Abdominal distension [None]
  - Fatigue [None]
  - Diarrhoea [None]
  - Glossodynia [None]
  - Vomiting [None]
  - Chromaturia [None]
  - Peripheral swelling [None]
  - Abdominal distension [None]
  - Abdominal pain [None]
  - Weight decreased [None]
  - Intra-abdominal fluid collection [None]
  - Blood potassium decreased [None]
  - Pruritus [None]

NARRATIVE: CASE EVENT DATE: 2017
